FAERS Safety Report 12789503 (Version 1)
Quarter: 2016Q3

REPORT INFORMATION
  Report Type: Report from Study
  Country: CO (occurrence: CO)
  Receive Date: 20160928
  Receipt Date: 20160928
  Transmission Date: 20161109
  Serious: Yes (Other)
  Sender: FDA-Public Use
  Company Number: CO-REGENERON PHARMACEUTICALS, INC.-2016-21994

PATIENT

DRUGS (2)
  1. EYLEA [Suspect]
     Active Substance: AFLIBERCEPT
     Indication: RETINAL ARTERY OCCLUSION
     Dosage: 2 MG, Q1MON
     Route: 031
     Dates: start: 20140418
  2. EYLEA [Suspect]
     Active Substance: AFLIBERCEPT
     Indication: RETINAL ARTERY OCCLUSION

REACTIONS (1)
  - Hemiplegia [Not Recovered/Not Resolved]

NARRATIVE: CASE EVENT DATE: 20160909
